FAERS Safety Report 9845524 (Version 1)
Quarter: 2014Q1

REPORT INFORMATION
  Report Type: Spontaneous
  Country: US (occurrence: None)
  Receive Date: 20140123
  Receipt Date: 20140123
  Transmission Date: 20141002
  Serious: No
  Sender: FDA-Public Use
  Company Number: None

PATIENT
  Age: 58 None
  Sex: Female

DRUGS (14)
  1. ELMIRON [Suspect]
     Indication: CYSTITIS
     Dosage: 2 PILLS A DAY MORNING AND EVENING BY MOUTH
     Route: 048
     Dates: start: 20120105, end: 20120122
  2. ELMIRON [Suspect]
     Indication: BLADDER DISORDER
     Dosage: 2 PILLS A DAY MORNING AND EVENING BY MOUTH
     Route: 048
     Dates: start: 20120105, end: 20120122
  3. ELMIRON [Suspect]
     Indication: DYSURIA
     Dosage: 2 PILLS A DAY MORNING AND EVENING BY MOUTH
     Route: 048
     Dates: start: 20120105, end: 20120122
  4. ELMIRON [Suspect]
     Indication: CYSTITIS
     Dosage: 2 PILLS A DAY MORNING AND EVENING BY MOUTH
     Route: 048
     Dates: start: 20120105, end: 20120122
  5. ELMIRON [Suspect]
     Indication: POLLAKIURIA
     Dosage: 2 PILLS A DAY MORNING AND EVENING BY MOUTH
     Route: 048
     Dates: start: 20120105, end: 20120122
  6. ESTRADIOL PATCH [Concomitant]
  7. IRON [Concomitant]
  8. VITAMIN C [Concomitant]
  9. CALCIUM [Concomitant]
  10. VITAMIN D [Concomitant]
  11. MULTI VITAMIN [Concomitant]
  12. POTASSIUM [Concomitant]
  13. PROBIOTIC [Concomitant]
  14. B12 [Concomitant]

REACTIONS (13)
  - Dry throat [None]
  - Foreign body [None]
  - Wheezing [None]
  - Abdominal discomfort [None]
  - Headache [None]
  - Restlessness [None]
  - Palpitations [None]
  - Oropharyngeal pain [None]
  - Swollen tongue [None]
  - Dizziness [None]
  - Faeces discoloured [None]
  - Constipation [None]
  - Extrasystoles [None]
